FAERS Safety Report 7919051-5 (Version None)
Quarter: 2011Q4

REPORT INFORMATION
  Report Type: 
  Country: None (occurrence: None)
  Receive Date: 20111116
  Receipt Date: 20111107
  Transmission Date: 20120403
  Serious: Yes (Hospitalization)
  Sender: FDA-Public Use
  Company Number: US-ASTRAZENECA-2010SE44097

PATIENT
  Age: 93 Year
  Sex: Female

DRUGS (3)
  1. PRILOSEC [Suspect]
     Route: 048
  2. NEXIUM [Suspect]
     Route: 048
     Dates: start: 20060101
  3. PRILOSEC [Suspect]
     Route: 048

REACTIONS (7)
  - HIATUS HERNIA [None]
  - PNEUMONIA [None]
  - NAUSEA [None]
  - NASOPHARYNGITIS [None]
  - MALAISE [None]
  - DRUG INEFFECTIVE [None]
  - DRUG DOSE OMISSION [None]
